FAERS Safety Report 23671698 (Version 3)
Quarter: 2024Q2

REPORT INFORMATION
  Report Type: Report from Study
  Country: CR (occurrence: CR)
  Receive Date: 20240326
  Receipt Date: 20240418
  Transmission Date: 20240716
  Serious: Yes (Other)
  Sender: FDA-Public Use
  Company Number: CR-002147023-NVSC2023CR256862

PATIENT
  Age: 61 Year
  Sex: Female
  Weight: 50.1 kg

DRUGS (11)
  1. KISQALI [Suspect]
     Active Substance: RIBOCICLIB
     Indication: Breast cancer
     Dosage: 600 MG, QD
     Route: 048
     Dates: start: 20221101
  2. KISQALI [Suspect]
     Active Substance: RIBOCICLIB
     Dosage: 600 MG, QD
     Route: 048
     Dates: start: 20221201, end: 20240322
  3. KISQALI [Suspect]
     Active Substance: RIBOCICLIB
     Dosage: 600 MGS X DAY X 21 DAYS (EVERY 28 DAYS) FOR 30 DAY(S)
     Route: 065
     Dates: start: 20240122
  4. ZOMETA [Suspect]
     Active Substance: ZOLEDRONIC ACID
     Indication: Product used for unknown indication
     Dosage: UNK, Q3MO (EVERY 3 MONTHS)
     Route: 042
  5. LETROZOLE [Suspect]
     Active Substance: LETROZOLE
     Indication: Product used for unknown indication
     Dosage: 2.5 MG, UNKNOWN
     Route: 065
  6. ANASTROZOLE [Suspect]
     Active Substance: ANASTROZOLE
     Indication: Alopecia
     Dosage: 1 MG, QD
     Route: 048
     Dates: start: 20240122
  7. ALBENDAZOLE [Concomitant]
     Active Substance: ALBENDAZOLE
     Indication: Product used for unknown indication
     Dosage: 400 MG (TAKE TWO TABLETS OR CAPSULES TOGETHER IN ONE SINGLE DOSE, WITH ONE MEAL)
     Route: 065
     Dates: start: 20240102
  8. LIDOCAINE HYDROCHLORIDE [Concomitant]
     Active Substance: LIDOCAINE HYDROCHLORIDE
     Indication: Product used for unknown indication
     Dosage: 20 MILLIGRAM PER MILLILITRE (5 CC)
     Route: 058
     Dates: start: 20240118
  9. DICLOFENAC SODIUM [Concomitant]
     Active Substance: DICLOFENAC\DICLOFENAC SODIUM
     Indication: Product used for unknown indication
     Dosage: 75 MG
     Route: 030
     Dates: start: 20231212
  10. VITAMIN D3 [Concomitant]
     Active Substance: CHOLECALCIFEROL
     Indication: Product used for unknown indication
     Dosage: 1500 IU (3 DROPS), QD
     Route: 048
     Dates: start: 20231127
  11. CALCIUM [Concomitant]
     Active Substance: CALCIUM
     Indication: Product used for unknown indication
     Dosage: 600 MG, QD (TAKE TWO TABLETS OR CAPSULES TOGETHER ONCE A DAY, AT THE SAME TIME)
     Route: 065
     Dates: start: 20231127

REACTIONS (42)
  - Liver injury [Unknown]
  - Spinal column injury [Unknown]
  - Metastasis [Not Recovered/Not Resolved]
  - Metastases to bone [Unknown]
  - Metastases to liver [Unknown]
  - Nasopharyngitis [Not Recovered/Not Resolved]
  - Tooth fracture [Unknown]
  - Breast cancer [Unknown]
  - Malignant neoplasm progression [Unknown]
  - Alopecia [Not Recovered/Not Resolved]
  - Pain [Not Recovered/Not Resolved]
  - Spinal fracture [Unknown]
  - Renal atrophy [Unknown]
  - Sensitive skin [Not Recovered/Not Resolved]
  - Hypersensitivity [Unknown]
  - Skin irritation [Not Recovered/Not Resolved]
  - Pruritus [Recovering/Resolving]
  - Skin burning sensation [Unknown]
  - Bone pain [Unknown]
  - Skin papilloma [Unknown]
  - Pain in extremity [Unknown]
  - Fatigue [Not Recovered/Not Resolved]
  - Eating disorder [Unknown]
  - Photosensitivity reaction [Unknown]
  - Thermal burn [Recovering/Resolving]
  - Dry skin [Not Recovered/Not Resolved]
  - Hypertension [Not Recovered/Not Resolved]
  - Hepatic lesion [Unknown]
  - Somnolence [Not Recovered/Not Resolved]
  - Discomfort [Unknown]
  - Cholelithiasis [Unknown]
  - Lymphadenopathy [Unknown]
  - Blood urea increased [Unknown]
  - Blood creatinine increased [Unknown]
  - Red blood cell count decreased [Unknown]
  - Haematocrit decreased [Unknown]
  - Mean cell haemoglobin increased [Unknown]
  - Mean platelet volume decreased [Unknown]
  - White blood cell count decreased [Unknown]
  - Eosinophil count increased [Unknown]
  - Computerised tomogram abnormal [Unknown]
  - Pain of skin [Unknown]

NARRATIVE: CASE EVENT DATE: 20221201
